FAERS Safety Report 12316571 (Version 1)
Quarter: 2016Q2

REPORT INFORMATION
  Report Type: Spontaneous
  Country: US (occurrence: US)
  Receive Date: 20160429
  Receipt Date: 20160429
  Transmission Date: 20160815
  Serious: Yes (Other)
  Sender: FDA-Public Use
  Company Number: US-TEVA-655966ACC

PATIENT
  Age: 41 Year
  Sex: Female
  Weight: 64.01 kg

DRUGS (1)
  1. PARAGARD T 380A [Suspect]
     Active Substance: COPPER
     Indication: CONTRACEPTION
     Dates: start: 20160314, end: 20160321

REACTIONS (6)
  - Streptococcal infection [Recovered/Resolved]
  - Pyrexia [Recovered/Resolved]
  - Uterine leiomyoma [Unknown]
  - Ovarian cyst ruptured [Unknown]
  - Vaginal discharge [Recovered/Resolved]
  - Abdominal pain [Recovered/Resolved]

NARRATIVE: CASE EVENT DATE: 20160321
